FAERS Safety Report 14610552 (Version 1)
Quarter: 2018Q1

REPORT INFORMATION
  Report Type: Spontaneous
  Country: BE (occurrence: BE)
  Receive Date: 20180307
  Receipt Date: 20180307
  Transmission Date: 20180509
  Serious: Yes (Death)
  Sender: FDA-Public Use
  Company Number: BE-US WORLDMEDS, LLC-E2B_00002706

PATIENT
  Age: 88 Year
  Sex: Female

DRUGS (3)
  1. PROLOPA [Concomitant]
     Active Substance: BENSERAZIDE\LEVODOPA
     Indication: PARKINSON^S DISEASE
  2. XADAGO [Suspect]
     Active Substance: SAFINAMIDE MESYLATE
     Route: 050
     Dates: start: 20180129
  3. XADAGO [Suspect]
     Active Substance: SAFINAMIDE MESYLATE
     Indication: PARKINSON^S DISEASE
     Route: 048
     Dates: start: 201707

REACTIONS (2)
  - Product use issue [Unknown]
  - Disease progression [Fatal]

NARRATIVE: CASE EVENT DATE: 20180129
